FAERS Safety Report 6073990-1 (Version None)
Quarter: 2009Q1

REPORT INFORMATION
  Report Type: 
  Country: None (occurrence: None)
  Receive Date: 20090209
  Receipt Date: 20090209
  Transmission Date: 20090719
  Serious: No
  Sender: FDA-Public Use
  Company Number: None

PATIENT
  Age: 40 Year
  Sex: Female
  Weight: 58.9676 kg

DRUGS (2)
  1. AMBIEN [Suspect]
     Indication: INSOMNIA
     Dosage: 10 MG ONCER PER NIGHT PO
     Route: 048
     Dates: start: 20080101, end: 20090207
  2. AMBIEN CR [Suspect]
     Dosage: 10 MG ONCE PR NIGHT PO
     Route: 048

REACTIONS (1)
  - LACTOSE INTOLERANCE [None]
